FAERS Safety Report 10076739 (Version 2)
Quarter: 2014Q2

REPORT INFORMATION
  Report Type: Spontaneous
  Country: US (occurrence: US)
  Receive Date: 20140414
  Receipt Date: 20140421
  Transmission Date: 20141212
  Serious: Yes (Death, Hospitalization, Other)
  Sender: FDA-Public Use
  Company Number: US-B.I. PHARMACEUTICALS,INC./RIDGEFIELD-2014-BI-16758BP

PATIENT
  Age: 70 Year
  Sex: Female

DRUGS (16)
  1. PRADAXA [Suspect]
     Indication: ATRIAL FIBRILLATION
     Dosage: 300 MG
     Route: 065
  2. CALCITRATE [Concomitant]
     Route: 065
  3. BIOTIN [Concomitant]
     Route: 065
  4. ENBREL [Concomitant]
     Route: 065
  5. DEXILANT [Concomitant]
     Route: 065
  6. CENTRUM SILVER [Concomitant]
     Route: 065
  7. VITAMIN D 2 [Concomitant]
     Route: 065
  8. MAXALT [Concomitant]
     Route: 065
  9. LOSARTAN [Concomitant]
     Route: 065
  10. IPRATROPIUM BROMIDE NASAL SPRAY [Concomitant]
     Dosage: FORMULATION: NASAL SPRAY
     Route: 065
  11. ACETAMINOPHEN [Concomitant]
     Route: 065
  12. POTASSIUM [Concomitant]
     Route: 065
  13. PREDNISONE [Concomitant]
     Route: 065
  14. PRISTIQ [Concomitant]
     Route: 065
  15. BECLOMETASONE [Concomitant]
     Route: 065
  16. DOPIAZEM [Concomitant]
     Route: 065

REACTIONS (5)
  - Gastrointestinal haemorrhage [Fatal]
  - Cardiac arrest [Fatal]
  - Nausea [Unknown]
  - Vomiting [Unknown]
  - Pericarditis [Unknown]
